FAERS Safety Report 5612391-4 (Version None)
Quarter: 2008Q1

REPORT INFORMATION
  Report Type: 
  Country: None (occurrence: None)
  Receive Date: 20080204
  Receipt Date: 20080123
  Transmission Date: 20080703
  Serious: Yes (Hospitalization, Other)
  Sender: FDA-Public Use
  Company Number: US-MERCK-0711USA00688

PATIENT
  Age: 62 Year
  Sex: Female
  Weight: 68 kg

DRUGS (23)
  1. FOSAMAX [Suspect]
     Indication: OSTEOPOROSIS
     Route: 048
     Dates: start: 20000401, end: 20060201
  2. FOSAMAX [Suspect]
     Route: 048
     Dates: start: 20010901
  3. PREMPRO [Concomitant]
     Route: 065
     Dates: start: 19990101, end: 20050101
  4. [THERAPY UNSPECIFIED] [Concomitant]
     Indication: BLOOD CHOLESTEROL INCREASED
     Route: 065
     Dates: start: 19820101
  5. SKELAXIN [Concomitant]
     Indication: ARTHRITIS
     Route: 065
     Dates: start: 20000423
  6. XANAX [Concomitant]
     Indication: DEPRESSION
     Route: 065
     Dates: start: 20000423
  7. XANAX [Concomitant]
     Route: 065
     Dates: start: 19920101
  8. XANAX [Concomitant]
     Indication: PANIC ATTACK
     Route: 065
     Dates: start: 20000423
  9. XANAX [Concomitant]
     Route: 065
     Dates: start: 19920101
  10. [THERAPY UNSPECIFIED] [Concomitant]
     Indication: RHEUMATOID ARTHRITIS
     Route: 065
     Dates: start: 19830101
  11. ZOLOFT [Concomitant]
     Route: 065
  12. ZANTAC [Concomitant]
     Route: 065
  13. DICYCLOMINE HYDROCHLORIDE [Concomitant]
     Indication: GASTRIC DISORDER
     Route: 065
  14. DICYCLOMINE HYDROCHLORIDE [Concomitant]
     Indication: IRRITABLE BOWEL SYNDROME
     Route: 065
  15. LORCET [Concomitant]
     Route: 065
  16. CATAFLAM [Concomitant]
     Indication: OSTEOARTHRITIS
     Route: 065
  17. ULTRAM [Concomitant]
     Route: 065
  18. ROBAXIN [Concomitant]
     Route: 065
  19. METHYLPREDNISOLONE [Concomitant]
     Route: 065
     Dates: start: 20000520, end: 20000601
  20. TENORMIN [Concomitant]
     Indication: HYPERTENSION
     Route: 065
     Dates: start: 19780101
  21. LEVOXYL [Concomitant]
     Indication: THYROID DISORDER
     Route: 065
  22. TRAMADOL HYDROCHLORIDE [Concomitant]
     Route: 065
     Dates: start: 20000101
  23. HYDROCODONE BITARTRATE [Concomitant]
     Route: 065
     Dates: start: 19991001

REACTIONS (23)
  - ABNORMAL DREAMS [None]
  - ADVERSE DRUG REACTION [None]
  - ANGIOEDEMA [None]
  - DEPRESSION [None]
  - DRY EYE [None]
  - DYSURIA [None]
  - EYELID DISORDER [None]
  - FIBROMYALGIA [None]
  - FUNGAL INFECTION [None]
  - HYPERHIDROSIS [None]
  - HYPERLIPIDAEMIA [None]
  - HYPOKALAEMIA [None]
  - MIGRAINE [None]
  - OSTEOARTHRITIS [None]
  - OSTEONECROSIS [None]
  - PHARYNGEAL OEDEMA [None]
  - RESTLESS LEGS SYNDROME [None]
  - RHINORRHOEA [None]
  - SYNOVIAL CYST [None]
  - TEMPOROMANDIBULAR JOINT SYNDROME [None]
  - TOOTH ABSCESS [None]
  - VASCULAR HEADACHE [None]
  - WEIGHT DECREASED [None]
